FAERS Safety Report 7354868-X (Version None)
Quarter: 2011Q1

REPORT INFORMATION
  Report Type: 
  Country: None (occurrence: None)
  Receive Date: 20110307
  Receipt Date: 20110302
  Transmission Date: 20110831
  Serious: Yes (Other)
  Sender: FDA-Public Use
  Company Number: KV201100044

PATIENT
  Age: 44 Year
  Sex: Female

DRUGS (2)
  1. PREDNISOLONE [Suspect]
     Indication: RHEUMATOID ARTHRITIS
     Dosage: 15 MG, QD, ORAL
     Route: 048
  2. ADALIMUMAB (ADALIMUMAB) [Suspect]
     Indication: RHEUMATOID ARTHRITIS

REACTIONS (1)
  - DEMYELINATING POLYNEUROPATHY [None]
